FAERS Safety Report 20218336 (Version 2)
Quarter: 2021Q4

REPORT INFORMATION
  Report Type: Report from Study
  Country: US (occurrence: US)
  Receive Date: 20211222
  Receipt Date: 20211231
  Transmission Date: 20220303
  Serious: No
  Sender: FDA-Public Use
  Company Number: US-TAKEDA-2021TUS080735

PATIENT
  Sex: Female

DRUGS (3)
  1. HUMAN IMMUNOGLOBULIN G [Suspect]
     Active Substance: HUMAN IMMUNOGLOBULIN G
     Indication: Product used for unknown indication
     Dosage: 4 GRAM
     Route: 065
  2. HUMAN IMMUNOGLOBULIN G [Suspect]
     Active Substance: HUMAN IMMUNOGLOBULIN G
     Dosage: 4 GRAM
     Route: 065
  3. HUMAN IMMUNOGLOBULIN G [Suspect]
     Active Substance: HUMAN IMMUNOGLOBULIN G
     Dosage: 1 GRAM
     Route: 065

REACTIONS (2)
  - Infusion site pain [Unknown]
  - Incorrect dose administered [Unknown]
